FAERS Safety Report 9739349 (Version 1)
Quarter: 2013Q4

REPORT INFORMATION
  Report Type: Spontaneous
  Country: KR (occurrence: KR)
  Receive Date: 20131209
  Receipt Date: 20131209
  Transmission Date: 20140711
  Serious: Yes (Other)
  Sender: FDA-Public Use
  Company Number: KR-009507513-1312KOR002291

PATIENT
  Sex: Female

DRUGS (1)
  1. VYTORIN TABLET 10/10 [Suspect]
     Dosage: ONE TABLET AT NIGHT, QD
     Route: 048

REACTIONS (3)
  - Diplegia [Unknown]
  - Flank pain [Unknown]
  - Abasia [Unknown]
